FAERS Safety Report 8862192 (Version 4)
Quarter: 2012Q4

REPORT INFORMATION
  Report Type: 
  Country: JP (occurrence: JP)
  Receive Date: 20121026
  Receipt Date: 20121205
  Transmission Date: 20130627
  Serious: Yes (Death)
  Sender: FDA-Public Use
  Company Number: JP-B.I. PHARMACEUTICALS,INC./RIDGEFIELD-2012-BP-26514NB

PATIENT
  Age: 81 Year
  Sex: Male

DRUGS (10)
  1. MIRAPEX [Suspect]
     Indication: PARKINSON^S DISEASE
     Dosage: 0.375 mg
     Route: 048
     Dates: start: 20120831, end: 20120907
  2. TRAMCET [Suspect]
     Indication: BACK PAIN
     Route: 048
     Dates: start: 20120831
  3. NEODOPASTON [Concomitant]
     Indication: PARKINSON^S DISEASE
     Dosage: 150 mg
     Route: 048
     Dates: end: 20120907
  4. NAUZELIN [Concomitant]
     Indication: NAUSEA
     Dosage: 30 mg
     Route: 048
     Dates: start: 20120622
  5. BAYASPIRIN [Concomitant]
     Indication: CEREBROVASCULAR ACCIDENT PROPHYLAXIS
     Route: 048
  6. BLOPRESS [Concomitant]
     Indication: HYPERTENSION
     Dosage: 8 mg
     Route: 048
  7. ADALAT-CR [Concomitant]
     Indication: HYPERTENSION
     Route: 048
  8. HARNAL [Concomitant]
     Indication: DYSURIA
     Dosage: 0.2 mg
     Route: 048
  9. CIBENOL [Concomitant]
     Indication: MYOCARDIAL ISCHAEMIA
     Route: 048
  10. BENET [Concomitant]
     Indication: OSTEOPOROSIS
     Dosage: 17.5 mg
     Route: 048

REACTIONS (3)
  - Cardiac disorder [Fatal]
  - Vertigo [Recovered/Resolved]
  - Drug interaction [Unknown]
